FAERS Safety Report 5984381-3 (Version None)
Quarter: 2008Q4

REPORT INFORMATION
  Report Type: 
  Country: None (occurrence: None)
  Receive Date: 20081208
  Receipt Date: 20081204
  Transmission Date: 20090506
  Serious: Yes (Life-Threatening, Hospitalization, Other)
  Sender: FDA-Public Use
  Company Number: PHHY2008JP28130

PATIENT
  Sex: Female

DRUGS (9)
  1. FEMARA [Suspect]
     Indication: BREAST CANCER
     Dosage: 2.5 MG DAILY
     Route: 048
     Dates: start: 20081008, end: 20081109
  2. FLUITRAN [Suspect]
     Dosage: 2 MG DAILY
     Route: 048
     Dates: start: 20080813, end: 20081101
  3. ANTI-PARKINSON AGENTS [Concomitant]
  4. ANTIHYPERTENSIVE DRUGS [Concomitant]
  5. ANTICOAGULANTS [Concomitant]
  6. BUFFERIN [Concomitant]
     Dosage: 81 MG
     Route: 048
     Dates: end: 20081109
  7. ENALAPRIL MALEATE [Concomitant]
     Dosage: 5 MG
     Route: 048
     Dates: end: 20081109
  8. ACECOL [Concomitant]
     Dosage: 5 MG
     Route: 048
     Dates: end: 20081109
  9. NILVADIPINE [Concomitant]
     Dosage: 4MG
     Route: 048
     Dates: end: 20081109

REACTIONS (9)
  - BLOOD CREATININE INCREASED [None]
  - BLOOD POTASSIUM INCREASED [None]
  - BLOOD SODIUM DECREASED [None]
  - BLOOD UREA INCREASED [None]
  - C-REACTIVE PROTEIN INCREASED [None]
  - DYSSTASIA [None]
  - RENAL FAILURE ACUTE [None]
  - RHABDOMYOLYSIS [None]
  - URINARY TRACT INFECTION [None]
